FAERS Safety Report 12350571 (Version 1)
Quarter: 2016Q2

REPORT INFORMATION
  Report Type: Spontaneous
  Country: ES (occurrence: ES)
  Receive Date: 20160510
  Receipt Date: 20160510
  Transmission Date: 20160815
  Serious: Yes (Other)
  Sender: FDA-Public Use
  Company Number: ES-BAYER-2016-082208

PATIENT
  Age: 80 Year
  Sex: Female

DRUGS (1)
  1. ACTIRA [Suspect]
     Active Substance: MOXIFLOXACIN HYDROCHLORIDE
     Indication: BRONCHITIS
     Dosage: 400 MG, QD
     Route: 048
     Dates: start: 20160413, end: 20160415

REACTIONS (1)
  - Hypersensitivity vasculitis [Unknown]

NARRATIVE: CASE EVENT DATE: 20160415
